FAERS Safety Report 5234720-6 (Version None)
Quarter: 2007Q1

REPORT INFORMATION
  Report Type: 
  Country: None (occurrence: None)
  Receive Date: 20070209
  Receipt Date: 20070131
  Transmission Date: 20070707
  Serious: Yes (Hospitalization)
  Sender: FDA-Public Use
  Company Number: US-SHR-US-2007-003411

PATIENT
  Sex: Female

DRUGS (1)
  1. CAMPATH [Suspect]
     Dosage: UNK, 2X/WEEK
     Dates: start: 20061201, end: 20070124

REACTIONS (1)
  - PSYCHOTIC DISORDER [None]
